FAERS Safety Report 7619622-X (Version None)
Quarter: 2011Q3

REPORT INFORMATION
  Report Type: 
  Country: None (occurrence: None)
  Receive Date: 20110719
  Receipt Date: 20090203
  Transmission Date: 20111222
  Serious: Yes (Death, Other)
  Sender: FDA-Public Use
  Company Number: US-BAYER-200922725NA

PATIENT
  Age: 73 Year
  Sex: Female
  Weight: 77 kg

DRUGS (27)
  1. TRASYLOL [Suspect]
     Indication: MITRAL VALVE REPAIR
     Dosage: LOADING DOSE - 200ML LOADING DOSE FOLLOWED BY 50ML/HR INFUSION
  2. TRASYLOL [Suspect]
     Indication: CARDIAC OPERATION
  3. NITROGLYCERIN [Concomitant]
     Dosage: 0.4 MG, PRN
  4. LASIX [Concomitant]
     Dosage: 20 MG, QD
  5. TRASYLOL [Suspect]
     Indication: ECHOCARDIOGRAM
  6. AMIODARONE HCL [Concomitant]
     Dosage: UNK
     Dates: start: 20040101
  7. LISINOPRIL [Concomitant]
  8. TRASYLOL [Suspect]
     Indication: TRICUSPID VALVE REPAIR
  9. DIGOXIN [Concomitant]
     Dosage: 0.25 MG, QD
     Dates: start: 20040201
  10. LOPRESSOR [Concomitant]
     Dosage: UNK
     Dates: start: 20040201
  11. RED BLOOD CELLS [Concomitant]
  12. METFORMIN HCL [Concomitant]
  13. COUMADIN [Concomitant]
     Dosage: 5MG 1 1/2 TABLET DAILY
     Dates: start: 20040201
  14. SIMVASTATIN [Concomitant]
     Dosage: 20 MG, QD
  15. VANCOMYCIN [Concomitant]
     Dosage: 1000MGG
  16. HEPARIN [Concomitant]
     Dosage: UNK
     Route: 042
     Dates: start: 20040212
  17. GENTAMICIN [Concomitant]
     Dosage: UNK
     Route: 042
     Dates: start: 20040212
  18. TRASYLOL [Suspect]
     Indication: PRODUCT USED FOR UNKNOWN INDICATION
     Dosage: TEST DOSE 100ML CARDIOPULMONARY BYPASS
     Route: 042
     Dates: start: 20040212, end: 20040212
  19. TOPROL-XL [Concomitant]
     Dosage: UNK
     Dates: start: 20040201
  20. ACETAMINOPHEN [Concomitant]
     Dosage: 325-650MG AS NECASSARY
  21. LOVENOX [Concomitant]
     Dosage: 90 MG, BID
     Dates: start: 20040201, end: 20040210
  22. LIPITOR [Concomitant]
     Dosage: 10 MG
  23. ACETYLSALICYLIC ACID SRT [Concomitant]
     Dosage: 325MG
     Dates: start: 20040201
  24. METOPROLOL TARTRATE [Concomitant]
     Dosage: 25 MG, BID
  25. LOTREL [Concomitant]
     Dosage: 5/20 DAILY
  26. PROTAMINE SULFATE [Concomitant]
     Dosage: UNK
     Route: 042
     Dates: start: 20040212
  27. MANNITOL [Concomitant]
     Dosage: UNK
     Route: 042
     Dates: start: 20040212

REACTIONS (10)
  - UNEVALUABLE EVENT [None]
  - EMOTIONAL DISTRESS [None]
  - PAIN [None]
  - RENAL FAILURE [None]
  - DEATH [None]
  - RENAL INJURY [None]
  - STRESS [None]
  - ANXIETY [None]
  - FEAR [None]
  - RENAL IMPAIRMENT [None]
